FAERS Safety Report 6650972-X (Version None)
Quarter: 2010Q1

REPORT INFORMATION
  Report Type: 
  Country: None (occurrence: None)
  Receive Date: 20100325
  Receipt Date: 20100316
  Transmission Date: 20100710
  Serious: No
  Sender: FDA-Public Use
  Company Number: US-BIOGENIDEC-2010BI008758

PATIENT
  Age: 72 Year
  Sex: Male

DRUGS (2)
  1. TYSABRI [Suspect]
     Indication: MULTIPLE SCLEROSIS
     Route: 042
     Dates: start: 20090406, end: 20091019
  2. TYSABRI [Suspect]
     Route: 042
     Dates: start: 20100315

REACTIONS (2)
  - BRADYPHRENIA [None]
  - MEMORY IMPAIRMENT [None]
